FAERS Safety Report 7352151-X (Version None)
Quarter: 2011Q1

REPORT INFORMATION
  Report Type: 
  Country: None (occurrence: None)
  Receive Date: 20110315
  Receipt Date: 20101005
  Transmission Date: 20110831
  Serious: Yes (Hospitalization, Other)
  Sender: FDA-Public Use
  Company Number: US-BAYER-201020270NA

PATIENT
  Sex: Female
  Weight: 56.689 kg

DRUGS (28)
  1. AUGMENTIN '125' [Concomitant]
     Indication: SINUS CONGESTION
  2. MUCINEX [Concomitant]
     Indication: OROPHARYNGEAL PAIN
     Dosage: UNK
     Dates: start: 20090901
  3. PRILOSEC [Concomitant]
     Indication: GASTROOESOPHAGEAL REFLUX DISEASE
  4. ANTACIDS [Concomitant]
     Indication: ABDOMINAL PAIN
  5. XANAX [Concomitant]
     Indication: STRESS
  6. XANAX [Concomitant]
     Indication: ABDOMINAL PAIN UPPER
  7. ANTACIDS [Concomitant]
     Indication: STRESS
  8. OCELLA [Suspect]
     Dosage: UNK
     Dates: start: 20070301, end: 20080801
  9. XANAX [Concomitant]
     Indication: ABDOMINAL PAIN
  10. PRILOSEC [Concomitant]
     Indication: ABDOMINAL PAIN UPPER
     Dosage: UNK
     Dates: start: 20101001
  11. ANTACIDS [Concomitant]
     Indication: ABDOMINAL PAIN UPPER
  12. AZITHROMYCIN [Concomitant]
     Dosage: 250 MG, UNK
  13. MUCINEX [Concomitant]
     Indication: PRODUCTIVE COUGH
  14. PRILOSEC [Concomitant]
     Indication: ABDOMINAL PAIN
  15. ANTACIDS [Concomitant]
     Indication: GASTROOESOPHAGEAL REFLUX DISEASE
  16. YASMIN [Suspect]
     Indication: ORAL CONTRACEPTION
     Dosage: UNK UNK, UNK
     Route: 048
     Dates: start: 20030801, end: 20060501
  17. AUGMENTIN '125' [Concomitant]
     Indication: OROPHARYNGEAL PAIN
     Dosage: UNK
     Dates: start: 20090901
  18. ASTHALIN [Concomitant]
     Indication: SINUS CONGESTION
  19. UNCODEABLE ^UNCLASSIFIABLE^ [Concomitant]
     Indication: ACNE
     Dosage: UNK
     Dates: start: 20100601
  20. YASMIN [Suspect]
     Dosage: UNK
     Dates: start: 20070301, end: 20080801
  21. OCELLA [Suspect]
     Indication: ORAL CONTRACEPTION
     Dosage: UNK
     Dates: start: 20030801, end: 20060501
  22. AUGMENTIN '125' [Concomitant]
     Indication: PRODUCTIVE COUGH
  23. PRILOSEC [Concomitant]
     Indication: STRESS
  24. XANAX [Concomitant]
     Indication: GASTROOESOPHAGEAL REFLUX DISEASE
  25. ASTHALIN [Concomitant]
     Indication: OROPHARYNGEAL PAIN
     Dosage: UNK
     Dates: start: 20090901
  26. ASTHALIN [Concomitant]
     Indication: PRODUCTIVE COUGH
  27. MUCINEX [Concomitant]
     Indication: SINUS CONGESTION
  28. HYDROCORTIZON [Concomitant]
     Indication: ACNE
     Dosage: UNK
     Dates: start: 20100601

REACTIONS (14)
  - CHOLECYSTITIS ACUTE [None]
  - CHOLELITHIASIS [None]
  - ABDOMINAL PAIN UPPER [None]
  - OROPHARYNGEAL PAIN [None]
  - PRODUCTIVE COUGH [None]
  - BACK PAIN [None]
  - VARICELLA VIRUS TEST POSITIVE [None]
  - ABDOMINAL PAIN [None]
  - STRESS [None]
  - GASTROOESOPHAGEAL REFLUX DISEASE [None]
  - WEIGHT INCREASED [None]
  - SINUS CONGESTION [None]
  - ACNE [None]
  - CHOLECYSTITIS CHRONIC [None]
